FAERS Safety Report 9635847 (Version 1)
Quarter: 2013Q4

REPORT INFORMATION
  Report Type: Report from Study
  Country: US (occurrence: US)
  Receive Date: 20131021
  Receipt Date: 20131021
  Transmission Date: 20140711
  Serious: Yes (Hospitalization)
  Sender: FDA-Public Use
  Company Number: US-ACTELION-A-NJ2013-89773

PATIENT
  Age: 52 Year
  Sex: Female

DRUGS (2)
  1. VELETRI [Suspect]
     Indication: PULMONARY ARTERIAL HYPERTENSION
     Dosage: 2 NG/KG, PER MIN
     Route: 042
     Dates: start: 20130925
  2. COUMADIN [Concomitant]

REACTIONS (3)
  - Contusion [Unknown]
  - Catheter site inflammation [Recovering/Resolving]
  - Pain in jaw [Unknown]
